FAERS Safety Report 6764103-9 (Version None)
Quarter: 2010Q2

REPORT INFORMATION
  Report Type: 
  Country: None (occurrence: None)
  Receive Date: 20100610
  Receipt Date: 20100602
  Transmission Date: 20101027
  Serious: Yes (Other)
  Sender: FDA-Public Use
  Company Number: DE-BAXTER-2010BH014198

PATIENT
  Age: 8 Year
  Sex: Male

DRUGS (3)
  1. FEIBA [Suspect]
     Indication: FACTOR VIII INHIBITION
     Route: 042
     Dates: start: 20100518, end: 20100525
  2. FEIBA [Suspect]
     Indication: FACTOR VIII DEFICIENCY
     Route: 042
     Dates: start: 20100518, end: 20100525
  3. NOVOSEVEN [Suspect]
     Indication: FACTOR VIII INHIBITION
     Route: 065

REACTIONS (1)
  - ANAPHYLACTIC REACTION [None]
